FAERS Safety Report 9347698 (Version 1)
Quarter: 2013Q2

REPORT INFORMATION
  Report Type: Spontaneous
  Country: US (occurrence: None)
  Receive Date: 20130611
  Receipt Date: 20130611
  Transmission Date: 20140414
  Serious: Yes (Other)
  Sender: FDA-Public Use
  Company Number: None

PATIENT
  Age: 47 Year
  Sex: Male
  Weight: 99.79 kg

DRUGS (1)
  1. CIPROFLAXIN [Suspect]
     Indication: DIVERTICULITIS

REACTIONS (8)
  - Speech disorder [None]
  - Thinking abnormal [None]
  - Memory impairment [None]
  - Arthralgia [None]
  - Fatigue [None]
  - Blood pressure increased [None]
  - Hypersomnia [None]
  - Feeling abnormal [None]
